FAERS Safety Report 14036838 (Version 2)
Quarter: 2017Q4

REPORT INFORMATION
  Report Type: Spontaneous
  Country: JP (occurrence: JP)
  Receive Date: 20171003
  Receipt Date: 20171207
  Transmission Date: 20180321
  Serious: Yes (Hospitalization)
  Sender: FDA-Public Use
  Company Number: JP-B.I. PHARMACEUTICALS,INC./RIDGEFIELD-2017-NB-005677

PATIENT
  Age: 74 Year
  Sex: Female

DRUGS (1)
  1. PRAZAXA [Suspect]
     Active Substance: DABIGATRAN ETEXILATE MESYLATE
     Indication: ATRIAL FIBRILLATION
     Route: 048
     Dates: start: 20160518, end: 20161022

REACTIONS (8)
  - Atrial fibrillation [Unknown]
  - Cardiac failure [Unknown]
  - Atrial thrombosis [Recovered/Resolved]
  - Disseminated intravascular coagulation [Unknown]
  - Cerebellar embolism [Unknown]
  - Pneumonia [Unknown]
  - Pleurisy [Unknown]
  - Hepatic congestion [Unknown]
